FAERS Safety Report 21391897 (Version 1)
Quarter: 2022Q3

REPORT INFORMATION
  Report Type: Other
  Country: US (occurrence: None)
  Receive Date: 20220929
  Receipt Date: 20220929
  Transmission Date: 20221026
  Serious: No
  Sender: FDA-Public Use
  Company Number: US-ROCHE-3186182

PATIENT
  Age: 58 Year
  Sex: Female
  Weight: 59.020 kg

DRUGS (3)
  1. OCREVUS [Suspect]
     Active Substance: OCRELIZUMAB
     Indication: Relapsing multiple sclerosis
     Dosage: ONGOING YES
     Route: 042
     Dates: start: 20210908
  2. OCREVUS [Suspect]
     Active Substance: OCRELIZUMAB
     Dosage: 22/FEB/2022
     Route: 042
  3. AUBAGIO [Concomitant]
     Active Substance: TERIFLUNOMIDE

REACTIONS (5)
  - COVID-19 [Recovered/Resolved]
  - Eye pain [Not Recovered/Not Resolved]
  - Hypoaesthesia [Unknown]
  - Joint stiffness [Unknown]
  - Hot flush [Unknown]

NARRATIVE: CASE EVENT DATE: 20220727
